FAERS Safety Report 8462437-3 (Version None)
Quarter: 2012Q2

REPORT INFORMATION
  Report Type: 
  Country: None (occurrence: None)
  Receive Date: 20120625
  Receipt Date: 20120618
  Transmission Date: 20120825
  Serious: Yes (Hospitalization, Other)
  Sender: FDA-Public Use
  Company Number: BR-PFIZER INC-2012147298

PATIENT
  Age: 54 Year
  Sex: Male
  Weight: 65 kg

DRUGS (5)
  1. LIPITOR [Suspect]
     Indication: BLOOD CHOLESTEROL
     Dosage: UNK
     Route: 048
     Dates: end: 20120301
  2. RAPAMUNE [Suspect]
     Indication: RENAL TRANSPLANT
     Dosage: TWO TABLETS OF 1MG DAILY (UNSPECIFIED FREQUENCY)
     Route: 048
     Dates: start: 19980101
  3. VFEND [Suspect]
     Indication: LUNG INFECTION
     Dosage: TWO TABLETS OF 200MG DAILY (UNSPECIFIED FREQUENCY)
     Route: 048
     Dates: start: 20120101, end: 20120518
  4. MYCOPHENOLIC ACID SODIUM SALT [Concomitant]
     Indication: RENAL TRANSPLANT
     Dosage: 1080MG DAILY (UNSPECIFIED FREQUENCY)
     Dates: start: 19980101
  5. PREDNISONE [Concomitant]
     Indication: RENAL TRANSPLANT
     Dosage: STRENGTH 10 MG
     Dates: start: 19980101

REACTIONS (7)
  - OEDEMA PERIPHERAL [None]
  - BACK PAIN [None]
  - ARTHRALGIA [None]
  - LUNG INFECTION [None]
  - SEPSIS [None]
  - MYALGIA [None]
  - DRUG PRESCRIBING ERROR [None]
